FAERS Safety Report 6018958-6 (Version None)
Quarter: 2008Q4

REPORT INFORMATION
  Report Type: 
  Country: None (occurrence: None)
  Receive Date: 20081221
  Receipt Date: 20081221
  Transmission Date: 20090506
  Serious: Yes (Hospitalization)
  Sender: FDA-Public Use
  Company Number: None

PATIENT
  Sex: Female
  Weight: 76 kg

DRUGS (2)
  1. FLUOROURACIL [Suspect]
     Dosage: 9200 MG
     Dates: end: 20081211
  2. ELOXATIN [Suspect]
     Dosage: 440 MG
     Dates: end: 20081208

REACTIONS (2)
  - BLOOD POTASSIUM DECREASED [None]
  - DIARRHOEA [None]
